FAERS Safety Report 6301044-5 (Version None)
Quarter: 2009Q3

REPORT INFORMATION
  Report Type: 
  Country: None (occurrence: None)
  Receive Date: 20090807
  Receipt Date: 20090727
  Transmission Date: 20100115
  Serious: Yes (Other)
  Sender: FDA-Public Use
  Company Number: CO-PFIZER INC-2009247759

PATIENT
  Age: 57 Year

DRUGS (3)
  1. AROMASIN [Suspect]
     Indication: BREAST CANCER
     Dosage: 25 MG, 1X/DAY
     Route: 048
     Dates: start: 20090402
  2. AROMASIN [Suspect]
     Dosage: 12.5 MG, 1X/DAY
     Route: 048
     Dates: start: 20090610, end: 20090708
  3. ZOLEDRONIC ACID [Concomitant]
     Dates: end: 20090301

REACTIONS (3)
  - BLOOD CREATININE INCREASED [None]
  - HYPERTENSION [None]
  - TUBULOINTERSTITIAL NEPHRITIS [None]
